FAERS Safety Report 12207690 (Version 1)
Quarter: 2016Q1

REPORT INFORMATION
  Report Type: Spontaneous
  Country: US (occurrence: US)
  Receive Date: 20160324
  Receipt Date: 20160324
  Transmission Date: 20160526
  Serious: No
  Sender: FDA-Public Use
  Company Number: PHEH2016US006994

PATIENT
  Sex: Female

DRUGS (1)
  1. VOTRIENT [Suspect]
     Active Substance: PAZOPANIB HYDROCHLORIDE
     Indication: UTERINE LEIOMYOMA
     Dosage: 400 MG, QD
     Route: 048
     Dates: start: 20151223, end: 20160307

REACTIONS (2)
  - Drug ineffective [Unknown]
  - Product use issue [Unknown]
